FAERS Safety Report 15427970 (Version 15)
Quarter: 2021Q3

REPORT INFORMATION
  Report Type: Report from Study
  Country: SG (occurrence: SG)
  Receive Date: 20180926
  Receipt Date: 20210902
  Transmission Date: 20211014
  Serious: Yes (Hospitalization)
  Sender: FDA-Public Use
  Company Number: SG-ROCHE-2174911

PATIENT
  Age: 64 Year
  Sex: Male
  Weight: 61.4 kg

DRUGS (179)
  1. PARACETAMOL [Concomitant]
     Active Substance: ACETAMINOPHEN
     Dates: start: 20181001, end: 20181001
  2. PARACETAMOL [Concomitant]
     Active Substance: ACETAMINOPHEN
     Dates: start: 20181224, end: 20181224
  3. PARACETAMOL [Concomitant]
     Active Substance: ACETAMINOPHEN
     Dates: start: 20190805, end: 20190805
  4. PARACETAMOL [Concomitant]
     Active Substance: ACETAMINOPHEN
     Dates: start: 20190819, end: 20190819
  5. PARACETAMOL [Concomitant]
     Active Substance: ACETAMINOPHEN
     Dates: start: 20190902, end: 20190902
  6. PARACETAMOL [Concomitant]
     Active Substance: ACETAMINOPHEN
     Dates: start: 20191125, end: 20191125
  7. PARACETAMOL [Concomitant]
     Active Substance: ACETAMINOPHEN
     Dates: start: 20180813, end: 20180815
  8. RANITIDINE. [Concomitant]
     Active Substance: RANITIDINE
     Dates: start: 20181112, end: 20181112
  9. RANITIDINE. [Concomitant]
     Active Substance: RANITIDINE
     Dates: start: 20190513, end: 20190513
  10. RANITIDINE. [Concomitant]
     Active Substance: RANITIDINE
     Dates: start: 20190708, end: 20190708
  11. DIPHENHYDRAMINE HCL [Concomitant]
     Active Substance: DIPHENHYDRAMINE HYDROCHLORIDE
     Dates: start: 20190107, end: 20190107
  12. DIPHENHYDRAMINE HCL [Concomitant]
     Active Substance: DIPHENHYDRAMINE HYDROCHLORIDE
     Dates: start: 20181029, end: 20181029
  13. DIPHENHYDRAMINE HCL [Concomitant]
     Active Substance: DIPHENHYDRAMINE HYDROCHLORIDE
     Dates: start: 20200106, end: 20200106
  14. SODIUM CHLORIDE. [Concomitant]
     Active Substance: SODIUM CHLORIDE
     Dates: start: 20181001, end: 20181001
  15. SODIUM CHLORIDE. [Concomitant]
     Active Substance: SODIUM CHLORIDE
     Dates: start: 20181015, end: 20181015
  16. SODIUM CHLORIDE. [Concomitant]
     Active Substance: SODIUM CHLORIDE
     Dates: start: 20190121, end: 20190121
  17. OMEPRAZOLE. [Concomitant]
     Active Substance: OMEPRAZOLE
     Dates: start: 20171219
  18. FENOFIBRATE. [Concomitant]
     Active Substance: FENOFIBRATE
     Indication: HYPERLIPIDAEMIA
     Dates: start: 20180805, end: 20181021
  19. PARACETAMOL [Concomitant]
     Active Substance: ACETAMINOPHEN
     Indication: PAIN
     Dates: start: 20181001, end: 20181125
  20. PARACETAMOL [Concomitant]
     Active Substance: ACETAMINOPHEN
     Indication: CHILLS
     Dates: start: 20180806, end: 20180806
  21. PARACETAMOL [Concomitant]
     Active Substance: ACETAMINOPHEN
     Dates: start: 20190916, end: 20190916
  22. PARACETAMOL [Concomitant]
     Active Substance: ACETAMINOPHEN
     Dates: start: 20191223, end: 20191223
  23. PARACETAMOL [Concomitant]
     Active Substance: ACETAMINOPHEN
     Dates: start: 20180820, end: 20180902
  24. LIGNOCAINE HCL [Concomitant]
     Active Substance: LIDOCAINE HYDROCHLORIDE
     Indication: ANAESTHESIA
     Dates: start: 20180823, end: 20180823
  25. RANITIDINE. [Concomitant]
     Active Substance: RANITIDINE
     Indication: PREMEDICATION
     Dates: start: 20180806, end: 20180806
  26. RANITIDINE. [Concomitant]
     Active Substance: RANITIDINE
     Dates: start: 20190527, end: 20190527
  27. RANITIDINE. [Concomitant]
     Active Substance: RANITIDINE
     Dates: start: 20190610, end: 20190610
  28. RANITIDINE. [Concomitant]
     Active Substance: RANITIDINE
     Dates: start: 20190902, end: 20190902
  29. RANITIDINE. [Concomitant]
     Active Substance: RANITIDINE
     Dates: start: 20191014, end: 20191014
  30. RANITIDINE. [Concomitant]
     Active Substance: RANITIDINE
     Dates: start: 20191111, end: 20191111
  31. RANITIDINE. [Concomitant]
     Active Substance: RANITIDINE
     Dates: start: 20191223, end: 20191223
  32. DIPHENHYDRAMINE HCL [Concomitant]
     Active Substance: DIPHENHYDRAMINE HYDROCHLORIDE
     Dates: start: 20181126, end: 20181126
  33. DIPHENHYDRAMINE HCL [Concomitant]
     Active Substance: DIPHENHYDRAMINE HYDROCHLORIDE
     Dates: start: 20190624, end: 20190624
  34. DIPHENHYDRAMINE HCL [Concomitant]
     Active Substance: DIPHENHYDRAMINE HYDROCHLORIDE
     Dates: start: 20190916, end: 20190916
  35. DIPHENHYDRAMINE HCL [Concomitant]
     Active Substance: DIPHENHYDRAMINE HYDROCHLORIDE
     Dates: start: 20200120, end: 20200120
  36. DIPHENHYDRAMINE HCL [Concomitant]
     Active Substance: DIPHENHYDRAMINE HYDROCHLORIDE
     Dates: start: 20180806, end: 20180806
  37. SODIUM CHLORIDE. [Concomitant]
     Active Substance: SODIUM CHLORIDE
     Dates: start: 20180917, end: 20181015
  38. SODIUM CHLORIDE. [Concomitant]
     Active Substance: SODIUM CHLORIDE
     Dates: start: 20190805, end: 20190805
  39. SODIUM CHLORIDE. [Concomitant]
     Active Substance: SODIUM CHLORIDE
     Dates: start: 20190916, end: 20190916
  40. ATORVASTATIN [Concomitant]
     Active Substance: ATORVASTATIN
     Indication: HYPERLIPIDAEMIA
     Dates: start: 20180805, end: 20180924
  41. PARACETAMOL [Concomitant]
     Active Substance: ACETAMINOPHEN
     Dates: start: 20190610, end: 20190610
  42. POTASSIUM CHLORIDE. [Concomitant]
     Active Substance: POTASSIUM CHLORIDE
     Indication: HYPOKALAEMIA
     Dates: start: 20180823, end: 20180824
  43. RANITIDINE. [Concomitant]
     Active Substance: RANITIDINE
     Dates: start: 20200120, end: 20200120
  44. DIPHENHYDRAMINE HCL [Concomitant]
     Active Substance: DIPHENHYDRAMINE HYDROCHLORIDE
     Dates: start: 20180820, end: 20180820
  45. DIPHENHYDRAMINE HCL [Concomitant]
     Active Substance: DIPHENHYDRAMINE HYDROCHLORIDE
     Dates: start: 20190121, end: 20190121
  46. DIPHENHYDRAMINE HCL [Concomitant]
     Active Substance: DIPHENHYDRAMINE HYDROCHLORIDE
     Dates: start: 20190201, end: 20190201
  47. DIPHENHYDRAMINE HCL [Concomitant]
     Active Substance: DIPHENHYDRAMINE HYDROCHLORIDE
     Dates: start: 20190415, end: 20190415
  48. DIPHENHYDRAMINE HCL [Concomitant]
     Active Substance: DIPHENHYDRAMINE HYDROCHLORIDE
     Dates: start: 20190513, end: 20190513
  49. DIPHENHYDRAMINE HCL [Concomitant]
     Active Substance: DIPHENHYDRAMINE HYDROCHLORIDE
     Dates: start: 20191014, end: 20191014
  50. DIPHENHYDRAMINE HCL [Concomitant]
     Active Substance: DIPHENHYDRAMINE HYDROCHLORIDE
     Dates: start: 20191209, end: 20191209
  51. SODIUM CHLORIDE. [Concomitant]
     Active Substance: SODIUM CHLORIDE
     Dates: start: 20181029, end: 20181029
  52. SODIUM CHLORIDE. [Concomitant]
     Active Substance: SODIUM CHLORIDE
     Dates: start: 20190304, end: 20190304
  53. SODIUM CHLORIDE. [Concomitant]
     Active Substance: SODIUM CHLORIDE
     Dates: start: 20190902, end: 20190902
  54. SODIUM CHLORIDE. [Concomitant]
     Active Substance: SODIUM CHLORIDE
     Dates: start: 20191125, end: 20191125
  55. SODIUM CHLORIDE. [Concomitant]
     Active Substance: SODIUM CHLORIDE
     Dates: start: 20191209, end: 20191209
  56. SODIUM CHLORIDE. [Concomitant]
     Active Substance: SODIUM CHLORIDE
     Dates: start: 20200106, end: 20200106
  57. NICOTINELL [Concomitant]
     Active Substance: NICOTINE
     Dosage: 14 MG/24HOUR PATCH
     Dates: start: 20190513, end: 20190602
  58. MAGNESIUM SULPHATE [Concomitant]
     Active Substance: MAGNESIUM SULFATE
     Dates: start: 20180823, end: 20180823
  59. LISINOPRIL. [Concomitant]
     Active Substance: LISINOPRIL
     Indication: HYPERTENSION
     Dates: start: 20180805, end: 20180908
  60. PARACETAMOL [Concomitant]
     Active Substance: ACETAMINOPHEN
     Dates: start: 20190107, end: 20190107
  61. PARACETAMOL [Concomitant]
     Active Substance: ACETAMINOPHEN
     Dates: start: 20190121, end: 20190121
  62. PARACETAMOL [Concomitant]
     Active Substance: ACETAMINOPHEN
     Dates: start: 20190304, end: 20190304
  63. PARACETAMOL [Concomitant]
     Active Substance: ACETAMINOPHEN
     Dates: start: 20190722, end: 20190722
  64. PARACETAMOL [Concomitant]
     Active Substance: ACETAMINOPHEN
     Dates: start: 20190930, end: 20190930
  65. PARACETAMOL [Concomitant]
     Active Substance: ACETAMINOPHEN
     Dates: start: 20191209, end: 20191209
  66. SODIUM GLYCEROPHOSPHATE [Concomitant]
     Active Substance: SODIUM GLYCEROPHOSPHATE
     Indication: HYPONATRAEMIA
     Dates: start: 20180821, end: 20180824
  67. RANITIDINE. [Concomitant]
     Active Substance: RANITIDINE
     Dates: start: 20180820, end: 20180820
  68. RANITIDINE. [Concomitant]
     Active Substance: RANITIDINE
     Dates: start: 20180820, end: 20180820
  69. RANITIDINE. [Concomitant]
     Active Substance: RANITIDINE
     Dates: start: 20180917, end: 20180917
  70. RANITIDINE. [Concomitant]
     Active Substance: RANITIDINE
     Dates: start: 20190429, end: 20190429
  71. RANITIDINE. [Concomitant]
     Active Substance: RANITIDINE
     Dates: start: 20190805, end: 20190805
  72. RANITIDINE. [Concomitant]
     Active Substance: RANITIDINE
     Dates: start: 20191025, end: 20191025
  73. DIPHENHYDRAMINE HCL [Concomitant]
     Active Substance: DIPHENHYDRAMINE HYDROCHLORIDE
     Dates: start: 20190304, end: 20190304
  74. DIPHENHYDRAMINE HCL [Concomitant]
     Active Substance: DIPHENHYDRAMINE HYDROCHLORIDE
     Dates: start: 20190527, end: 20190527
  75. DIPHENHYDRAMINE HCL [Concomitant]
     Active Substance: DIPHENHYDRAMINE HYDROCHLORIDE
     Dates: start: 20190429, end: 20190429
  76. DIPHENHYDRAMINE HCL [Concomitant]
     Active Substance: DIPHENHYDRAMINE HYDROCHLORIDE
     Dates: start: 20190902, end: 20190902
  77. DIPHENHYDRAMINE HCL [Concomitant]
     Active Substance: DIPHENHYDRAMINE HYDROCHLORIDE
     Dates: start: 20191025, end: 20191025
  78. SODIUM CHLORIDE. [Concomitant]
     Active Substance: SODIUM CHLORIDE
     Dates: start: 20190318, end: 20190318
  79. SODIUM CHLORIDE. [Concomitant]
     Active Substance: SODIUM CHLORIDE
     Dates: start: 20190513, end: 20190513
  80. SODIUM CHLORIDE. [Concomitant]
     Active Substance: SODIUM CHLORIDE
     Dates: start: 20190527, end: 20190527
  81. SODIUM CHLORIDE. [Concomitant]
     Active Substance: SODIUM CHLORIDE
     Dates: start: 20190429, end: 20190429
  82. SODIUM CHLORIDE. [Concomitant]
     Active Substance: SODIUM CHLORIDE
     Dates: start: 20190819, end: 20190819
  83. SODIUM CHLORIDE. [Concomitant]
     Active Substance: SODIUM CHLORIDE
     Dates: start: 20190930, end: 20190930
  84. SODIUM CHLORIDE. [Concomitant]
     Active Substance: SODIUM CHLORIDE
     Dates: start: 20191025, end: 20191025
  85. RO6874281 (FAP IL2V MAB) [Suspect]
     Active Substance: SIMLUKAFUSP ALFA
     Indication: NON-SMALL CELL LUNG CANCER
     Dosage: DATE OF MOST RECENT DOSE OF RO6874281 PRIOR TO ADVERSE EVENT AND SERIOUS ADVERSE EVENT (6:29 PM TO 8
     Route: 042
     Dates: start: 20180806
  86. PARACETAMOL [Concomitant]
     Active Substance: ACETAMINOPHEN
     Indication: PREMEDICATION
     Dates: start: 20180813, end: 20180813
  87. PARACETAMOL [Concomitant]
     Active Substance: ACETAMINOPHEN
     Dates: start: 20181029, end: 20181029
  88. PARACETAMOL [Concomitant]
     Active Substance: ACETAMINOPHEN
     Dates: start: 20181112, end: 20181112
  89. PARACETAMOL [Concomitant]
     Active Substance: ACETAMINOPHEN
     Dates: start: 20190401, end: 20190401
  90. PARACETAMOL [Concomitant]
     Active Substance: ACETAMINOPHEN
     Dates: start: 20191014, end: 20191014
  91. PARACETAMOL [Concomitant]
     Active Substance: ACETAMINOPHEN
     Dates: start: 20200106, end: 20200106
  92. PARACETAMOL [Concomitant]
     Active Substance: ACETAMINOPHEN
     Dates: start: 20180822, end: 20180825
  93. RANITIDINE. [Concomitant]
     Active Substance: RANITIDINE
     Dates: start: 20181015, end: 20181015
  94. RANITIDINE. [Concomitant]
     Active Substance: RANITIDINE
     Dates: start: 20190318, end: 20190318
  95. DIPHENHYDRAMINE HCL [Concomitant]
     Active Substance: DIPHENHYDRAMINE HYDROCHLORIDE
     Dates: start: 20180917, end: 20180917
  96. DIPHENHYDRAMINE HCL [Concomitant]
     Active Substance: DIPHENHYDRAMINE HYDROCHLORIDE
     Dates: start: 20181210, end: 20181210
  97. DIPHENHYDRAMINE HCL [Concomitant]
     Active Substance: DIPHENHYDRAMINE HYDROCHLORIDE
     Dates: start: 20190610, end: 20190610
  98. DIPHENHYDRAMINE HCL [Concomitant]
     Active Substance: DIPHENHYDRAMINE HYDROCHLORIDE
     Dates: start: 20191125, end: 20191125
  99. SODIUM CHLORIDE. [Concomitant]
     Active Substance: SODIUM CHLORIDE
     Dates: start: 20181224, end: 20181224
  100. SODIUM CHLORIDE. [Concomitant]
     Active Substance: SODIUM CHLORIDE
     Dates: start: 20190201, end: 20190201
  101. SODIUM CHLORIDE. [Concomitant]
     Active Substance: SODIUM CHLORIDE
     Dates: start: 20191223, end: 20191223
  102. MAGNESIUM SULPHATE [Concomitant]
     Active Substance: MAGNESIUM SULFATE
     Dates: start: 20180821, end: 20180821
  103. GLYCERYL TRINITRATE [Concomitant]
     Active Substance: NITROGLYCERIN
     Indication: CHEST PAIN
     Route: 048
     Dates: start: 20180405, end: 20181024
  104. PARACETAMOL [Concomitant]
     Active Substance: ACETAMINOPHEN
     Dates: start: 20181015, end: 20181015
  105. PARACETAMOL [Concomitant]
     Active Substance: ACETAMINOPHEN
     Dates: start: 20190415, end: 20190415
  106. PARACETAMOL [Concomitant]
     Active Substance: ACETAMINOPHEN
     Dates: start: 20190513, end: 20190513
  107. PARACETAMOL [Concomitant]
     Active Substance: ACETAMINOPHEN
     Dates: start: 20190527, end: 20190527
  108. PARACETAMOL [Concomitant]
     Active Substance: ACETAMINOPHEN
     Dates: start: 20190429, end: 20190429
  109. RANITIDINE. [Concomitant]
     Active Substance: RANITIDINE
     Dates: start: 20180813, end: 20180817
  110. RANITIDINE. [Concomitant]
     Active Substance: RANITIDINE
     Dates: start: 20181001, end: 20181001
  111. RANITIDINE. [Concomitant]
     Active Substance: RANITIDINE
     Dates: start: 20181029, end: 20181029
  112. RANITIDINE. [Concomitant]
     Active Substance: RANITIDINE
     Dates: start: 20190218, end: 20190218
  113. RANITIDINE. [Concomitant]
     Active Substance: RANITIDINE
     Dates: start: 20190624, end: 20190624
  114. RANITIDINE. [Concomitant]
     Active Substance: RANITIDINE
     Dates: start: 20190415, end: 20190415
  115. RANITIDINE. [Concomitant]
     Active Substance: RANITIDINE
     Dates: start: 20191125, end: 20191125
  116. RANITIDINE. [Concomitant]
     Active Substance: RANITIDINE
     Dates: start: 20200106, end: 20200106
  117. DIPHENHYDRAMINE HCL [Concomitant]
     Active Substance: DIPHENHYDRAMINE HYDROCHLORIDE
     Dates: start: 20190218, end: 20190218
  118. DIPHENHYDRAMINE HCL [Concomitant]
     Active Substance: DIPHENHYDRAMINE HYDROCHLORIDE
     Dates: start: 20190401, end: 20190401
  119. DIPHENHYDRAMINE HCL [Concomitant]
     Active Substance: DIPHENHYDRAMINE HYDROCHLORIDE
     Dates: start: 20190722, end: 20190722
  120. DIPHENHYDRAMINE HCL [Concomitant]
     Active Substance: DIPHENHYDRAMINE HYDROCHLORIDE
     Dates: start: 20190930, end: 20190930
  121. DIPHENHYDRAMINE HCL [Concomitant]
     Active Substance: DIPHENHYDRAMINE HYDROCHLORIDE
     Dates: start: 20191223, end: 20191223
  122. SODIUM CHLORIDE. [Concomitant]
     Active Substance: SODIUM CHLORIDE
     Dates: start: 20181210, end: 20181210
  123. SODIUM CHLORIDE. [Concomitant]
     Active Substance: SODIUM CHLORIDE
     Dates: start: 20190415, end: 20190415
  124. SODIUM CHLORIDE. [Concomitant]
     Active Substance: SODIUM CHLORIDE
     Dates: start: 20190610, end: 20190610
  125. SODIUM CHLORIDE. [Concomitant]
     Active Substance: SODIUM CHLORIDE
     Dates: start: 20190708, end: 20190708
  126. SODIUM CHLORIDE. [Concomitant]
     Active Substance: SODIUM CHLORIDE
     Dates: start: 20191111, end: 20191111
  127. GNC MAGNESIUM [Concomitant]
     Dates: start: 20180812, end: 20180814
  128. MAGNESIUM SULPHATE [Concomitant]
     Active Substance: MAGNESIUM SULFATE
     Indication: HYPOMAGNESAEMIA
     Dates: start: 20180814, end: 20180814
  129. ATEZOLIZUMAB. [Suspect]
     Active Substance: ATEZOLIZUMAB
     Indication: NON-SMALL CELL LUNG CANCER
     Dosage: DATE OF LAST DOSE OF ATEZOLIZUMAB PRIOR TO ADVERSE EVENT  AND SERIOUS ADVERSE EVENT (FROM 4:22 PM TO
     Route: 042
     Dates: start: 20180806
  130. PHOSPHATE SANDOZ [Concomitant]
     Active Substance: SODIUM PHOSPHATE, MONOBASIC, ANHYDROUS
     Dates: start: 20180820, end: 20180824
  131. PARACETAMOL [Concomitant]
     Active Substance: ACETAMINOPHEN
     Dates: start: 20181126, end: 20181126
  132. PARACETAMOL [Concomitant]
     Active Substance: ACETAMINOPHEN
     Dates: start: 20181210, end: 20181210
  133. PARACETAMOL [Concomitant]
     Active Substance: ACETAMINOPHEN
     Dates: start: 20190201, end: 20190201
  134. PARACETAMOL [Concomitant]
     Active Substance: ACETAMINOPHEN
     Dates: start: 20190218, end: 20190218
  135. PARACETAMOL [Concomitant]
     Active Substance: ACETAMINOPHEN
     Dates: start: 20190624, end: 20190624
  136. PARACETAMOL [Concomitant]
     Active Substance: ACETAMINOPHEN
     Dates: start: 20190708, end: 20190708
  137. PARACETAMOL [Concomitant]
     Active Substance: ACETAMINOPHEN
     Dates: start: 20191025, end: 20191025
  138. PARACETAMOL [Concomitant]
     Active Substance: ACETAMINOPHEN
     Dates: start: 20191111, end: 20191111
  139. PARACETAMOL [Concomitant]
     Active Substance: ACETAMINOPHEN
     Dates: start: 20200120, end: 20200120
  140. PARACETAMOL [Concomitant]
     Active Substance: ACETAMINOPHEN
     Dates: start: 20180820, end: 20180821
  141. TRAMADOL HCL [Concomitant]
     Active Substance: TRAMADOL HYDROCHLORIDE
     Indication: PAIN
     Dates: start: 20180823, end: 20180823
  142. RANITIDINE. [Concomitant]
     Active Substance: RANITIDINE
     Dates: start: 20181210, end: 20181210
  143. RANITIDINE. [Concomitant]
     Active Substance: RANITIDINE
     Dates: start: 20190107, end: 20190107
  144. RANITIDINE. [Concomitant]
     Active Substance: RANITIDINE
     Dates: start: 20190401, end: 20190401
  145. RANITIDINE. [Concomitant]
     Active Substance: RANITIDINE
     Dates: start: 20190916, end: 20190916
  146. RANITIDINE. [Concomitant]
     Active Substance: RANITIDINE
     Dates: start: 20190930, end: 20190930
  147. DIPHENHYDRAMINE HCL [Concomitant]
     Active Substance: DIPHENHYDRAMINE HYDROCHLORIDE
     Indication: PREMEDICATION
     Dates: start: 20190708, end: 20190708
  148. DIPHENHYDRAMINE HCL [Concomitant]
     Active Substance: DIPHENHYDRAMINE HYDROCHLORIDE
     Dates: start: 20180813, end: 20180813
  149. DIPHENHYDRAMINE HCL [Concomitant]
     Active Substance: DIPHENHYDRAMINE HYDROCHLORIDE
     Dates: start: 20181015, end: 20181015
  150. DIPHENHYDRAMINE HCL [Concomitant]
     Active Substance: DIPHENHYDRAMINE HYDROCHLORIDE
     Dates: start: 20190318, end: 20190318
  151. SODIUM CHLORIDE. [Concomitant]
     Active Substance: SODIUM CHLORIDE
     Dates: start: 20181126, end: 20181126
  152. SODIUM CHLORIDE. [Concomitant]
     Active Substance: SODIUM CHLORIDE
     Dates: start: 20190107, end: 20190107
  153. BETAMETHASONE VALERATE. [Concomitant]
     Active Substance: BETAMETHASONE VALERATE
     Indication: RASH
     Dates: start: 20181019, end: 20181025
  154. NICOTINELL [Concomitant]
     Active Substance: NICOTINE
     Dosage: 7 MG/24HOUR PATCH
     Dates: start: 20190603
  155. GNC MAGNESIUM [Concomitant]
     Indication: HYPOMAGNESAEMIA
     Dates: start: 20180806, end: 20180810
  156. HIRUDOID [Concomitant]
     Active Substance: GLYCOSAMINOGLYCANS
     Indication: ERYTHEMA
     Dates: start: 20180824, end: 20180924
  157. PHOSPHATE SANDOZ [Concomitant]
     Active Substance: SODIUM PHOSPHATE, MONOBASIC, ANHYDROUS
     Indication: HYPOPHOSPHATAEMIA
     Dates: start: 20180814, end: 20180816
  158. PARACETAMOL [Concomitant]
     Active Substance: ACETAMINOPHEN
     Indication: PYREXIA
     Dates: start: 20180808, end: 20180915
  159. PARACETAMOL [Concomitant]
     Active Substance: ACETAMINOPHEN
     Dates: start: 20190318, end: 20190318
  160. PARACETAMOL [Concomitant]
     Active Substance: ACETAMINOPHEN
     Dates: start: 20180807, end: 20180807
  161. PROCODIN [Concomitant]
     Active Substance: CODEINE PHOSPHATE\PROMETHAZINE HYDROCHLORIDE
     Indication: COUGH
     Dates: start: 20181112
  162. RANITIDINE. [Concomitant]
     Active Substance: RANITIDINE
     Dates: start: 20181126, end: 20181126
  163. RANITIDINE. [Concomitant]
     Active Substance: RANITIDINE
     Dates: start: 20181224, end: 20181224
  164. RANITIDINE. [Concomitant]
     Active Substance: RANITIDINE
     Dates: start: 20190121, end: 20190121
  165. RANITIDINE. [Concomitant]
     Active Substance: RANITIDINE
     Dates: start: 20190201, end: 20190201
  166. RANITIDINE. [Concomitant]
     Active Substance: RANITIDINE
     Dates: start: 20190304, end: 20190304
  167. RANITIDINE. [Concomitant]
     Active Substance: RANITIDINE
     Dates: start: 20190722, end: 20190722
  168. RANITIDINE. [Concomitant]
     Active Substance: RANITIDINE
     Dates: start: 20190819, end: 20190819
  169. RANITIDINE. [Concomitant]
     Active Substance: RANITIDINE
     Dates: start: 20191209, end: 20191209
  170. DIPHENHYDRAMINE HCL [Concomitant]
     Active Substance: DIPHENHYDRAMINE HYDROCHLORIDE
     Dates: start: 20181001, end: 20181001
  171. DIPHENHYDRAMINE HCL [Concomitant]
     Active Substance: DIPHENHYDRAMINE HYDROCHLORIDE
     Dates: start: 20181224, end: 20181224
  172. DIPHENHYDRAMINE HCL [Concomitant]
     Active Substance: DIPHENHYDRAMINE HYDROCHLORIDE
     Dates: start: 20190805, end: 20190805
  173. DIPHENHYDRAMINE HCL [Concomitant]
     Active Substance: DIPHENHYDRAMINE HYDROCHLORIDE
     Dates: start: 20190819, end: 20190819
  174. DIPHENHYDRAMINE HCL [Concomitant]
     Active Substance: DIPHENHYDRAMINE HYDROCHLORIDE
     Dates: start: 20191111, end: 20191111
  175. SODIUM CHLORIDE. [Concomitant]
     Active Substance: SODIUM CHLORIDE
     Dates: start: 20190218, end: 20190218
  176. SODIUM CHLORIDE. [Concomitant]
     Active Substance: SODIUM CHLORIDE
     Dates: start: 20190624, end: 20190624
  177. SODIUM CHLORIDE. [Concomitant]
     Active Substance: SODIUM CHLORIDE
     Dates: start: 20191014, end: 20191014
  178. SODIUM CHLORIDE. [Concomitant]
     Active Substance: SODIUM CHLORIDE
     Dates: start: 20200120, end: 20200120
  179. ORACARE [CHLORINE DIOXIDE] [Concomitant]
     Indication: LARYNGEAL ULCERATION
     Dates: start: 20180109

REACTIONS (1)
  - Systemic immune activation [Recovered/Resolved]

NARRATIVE: CASE EVENT DATE: 20180821
